APPROVED DRUG PRODUCT: SULFADIAZINE
Active Ingredient: SULFADIAZINE
Strength: 500MG
Dosage Form/Route: TABLET;ORAL
Application: A080088 | Product #001
Applicant: EVERYLIFE
Approved: Approved Prior to Jan 1, 1982 | RLD: No | RS: No | Type: DISCN